FAERS Safety Report 6531456-6 (Version None)
Quarter: 2010Q1

REPORT INFORMATION
  Report Type: 
  Country: None (occurrence: None)
  Receive Date: 20100108
  Receipt Date: 20091228
  Transmission Date: 20100710
  Serious: No
  Sender: FDA-Public Use
  Company Number: A0834999A

PATIENT
  Age: 65 Year
  Sex: Female

DRUGS (9)
  1. TYKERB [Suspect]
     Indication: BREAST CANCER
     Dosage: 1250MG PER DAY
     Route: 048
     Dates: start: 20091101
  2. XELODA [Concomitant]
  3. ZOLOFT [Concomitant]
  4. KLOR-CON [Concomitant]
  5. POTASSIUM [Concomitant]
  6. LUNESTA [Concomitant]
  7. PROCHLORPERAZINE [Concomitant]
  8. PREVACID [Concomitant]
  9. UNKNOWN MEDICATION [Concomitant]

REACTIONS (7)
  - DIARRHOEA [None]
  - ERYTHEMA [None]
  - HEART RATE IRREGULAR [None]
  - NAUSEA [None]
  - PRURITUS [None]
  - RASH [None]
  - SKIN EXFOLIATION [None]
